FAERS Safety Report 15578679 (Version 1)
Quarter: 2018Q4

REPORT INFORMATION
  Report Type: Other
  Country: PT (occurrence: PT)
  Receive Date: 20181102
  Receipt Date: 20181102
  Transmission Date: 20190205
  Serious: Yes (Other)
  Sender: FDA-Public Use
  Company Number: PT-ASPEN-GLO2018PT010905

PATIENT
  Age: 79 Year
  Sex: Male

DRUGS (4)
  1. CHLORAMBUCIL [Suspect]
     Active Substance: CHLORAMBUCIL
     Indication: CHRONIC LYMPHOCYTIC LEUKAEMIA
     Dosage: 12 CYCLES
     Route: 065
  2. CHLORAMBUCIL [Suspect]
     Active Substance: CHLORAMBUCIL
     Dosage: 6 CYCLES
     Route: 048
  3. PREDNISOLONE. [Suspect]
     Active Substance: PREDNISOLONE
     Indication: CHRONIC LYMPHOCYTIC LEUKAEMIA
     Dosage: 12 CYCLES
     Route: 065
  4. OBINUTUZUMAB. [Suspect]
     Active Substance: OBINUTUZUMAB
     Indication: CHRONIC LYMPHOCYTIC LEUKAEMIA
     Dosage: 6 CYCLES
     Route: 042

REACTIONS (6)
  - Anaemia [Unknown]
  - Neutropenia [Unknown]
  - Gastroenteritis [Unknown]
  - Off label use [Unknown]
  - Intentional product use issue [Unknown]
  - Thrombocytopenia [Unknown]

NARRATIVE: CASE EVENT DATE: 20171122
